FAERS Safety Report 4546973-8 (Version None)
Quarter: 2005Q1

REPORT INFORMATION
  Report Type: 
  Country: None (occurrence: None)
  Receive Date: 20050105
  Receipt Date: 20041216
  Transmission Date: 20050727
  Serious: Yes (Disabling)
  Sender: FDA-Public Use
  Company Number: 9523

PATIENT
  Age: 16 Year
  Sex: Male

DRUGS (10)
  1. METHOTREXATE [Suspect]
     Indication: NON-HODGKIN'S LYMPHOMA
     Dosage: {1 YEAR
     Route: 037
     Dates: start: 19870101, end: 19870101
  2. DOXORUBICIN HCL [Suspect]
     Indication: NON-HODGKIN'S LYMPHOMA
     Dosage: {1 YEAR
     Route: 042
     Dates: start: 19870101, end: 19870101
  3. CYTARABINE [Suspect]
     Indication: NON-HODGKIN'S LYMPHOMA
     Dosage: {1 YEAR
     Route: 042
     Dates: start: 19870101, end: 19870101
  4. ASPARAGINASE [Suspect]
     Indication: NON-HODGKIN'S LYMPHOMA
     Dosage: {1 YEAR
     Route: 042
     Dates: start: 19870101, end: 19870101
  5. CYTARABINE [Suspect]
     Indication: NON-HODGKIN'S LYMPHOMA
     Dosage: {1 YEAR
     Route: 042
     Dates: start: 19870101, end: 19870101
  6. CYTARABINE [Suspect]
     Indication: NON-HODGKIN'S LYMPHOMA
     Dosage: {1 YEAR
     Route: 042
     Dates: start: 19870101, end: 19870101
  7. CYCLOPHOSPHAMIDE [Suspect]
     Indication: NON-HODGKIN'S LYMPHOMA
     Dosage: {1 YEAR
     Dates: start: 19870101, end: 19870101
  8. MERCAPTOPURINE [Suspect]
     Indication: NON-HODGKIN'S LYMPHOMA
     Dosage: {1 YEAR
     Route: 042
     Dates: start: 19870101, end: 19870101
  9. VINCRISTINE [Suspect]
     Indication: NON-HODGKIN'S LYMPHOMA
     Dosage: {1 YEAR
     Route: 042
     Dates: start: 19870101, end: 19870101
  10. PREDNISOLONE [Suspect]
     Indication: NON-HODGKIN'S LYMPHOMA
     Dosage: {1 YEAR
     Route: 037
     Dates: start: 19870101, end: 19870101

REACTIONS (4)
  - CHORIORETINAL ATROPHY [None]
  - PSEUDOXANTHOMA ELASTICUM [None]
  - RETINAL DYSTROPHY [None]
  - VISUAL ACUITY REDUCED [None]
